FAERS Safety Report 9285836 (Version 1)
Quarter: 2013Q2

REPORT INFORMATION
  Report Type: Spontaneous
  Country: BR (occurrence: None)
  Receive Date: 20130507
  Receipt Date: 20130507
  Transmission Date: 20140414
  Serious: Yes (Other)
  Sender: FDA-Public Use
  Company Number: VAL_02500_2013

PATIENT
  Sex: Male
  Weight: 68 kg

DRUGS (9)
  1. PARLODEL [Suspect]
     Indication: BLOOD PROLACTIN INCREASED
  2. PARLODEL SRO [Suspect]
     Indication: BLOOD PROLACTIN INCREASED
     Dates: start: 2003
  3. DOSTINEX [Suspect]
     Indication: BLOOD PROLACTIN INCREASED
     Dosage: (0.5 DF 2X/WEEKK ORAL)
     Route: 048
     Dates: start: 2009
  4. OLCADIL [Concomitant]
  5. ASPIRINA PREVENT [Concomitant]
  6. VASTAREL MR-TRIMETAZIDINE HYDROCHLORIDE [Concomitant]
  7. NEOPRAZOL-OMEPRAZOLE [Concomitant]
  8. DIOVAN [Concomitant]
  9. LIPITOR [Concomitant]

REACTIONS (4)
  - Cardiac disorder [None]
  - Venous occlusion [None]
  - Blood prolactin increased [None]
  - Bundle branch block right [None]
